FAERS Safety Report 6440102-1 (Version None)
Quarter: 2009Q4

REPORT INFORMATION
  Report Type: 
  Country: None (occurrence: None)
  Receive Date: 20091113
  Receipt Date: 20081216
  Transmission Date: 20100525
  Serious: No
  Sender: FDA-Public Use
  Company Number: A0754443A

PATIENT
  Sex: Male

DRUGS (2)
  1. COREG [Suspect]
     Indication: HYPERTENSION
     Route: 048
     Dates: start: 20081001
  2. NO CONCURRENT MEDICATION [Concomitant]

REACTIONS (2)
  - FEELING COLD [None]
  - HYPERTENSION [None]
